FAERS Safety Report 19293527 (Version 1)
Quarter: 2021Q2

REPORT INFORMATION
  Report Type: Spontaneous
  Country: ES (occurrence: ES)
  Receive Date: 20210524
  Receipt Date: 20210524
  Transmission Date: 20210717
  Serious: Yes (Hospitalization)
  Sender: FDA-Public Use
  Company Number: ES-TEVA-2021-ES-1913702

PATIENT
  Age: 35 Year
  Sex: Male

DRUGS (4)
  1. OMEPRAZOL (2141A) [Concomitant]
     Active Substance: OMEPRAZOLE
     Indication: PROPHYLAXIS
     Route: 048
     Dates: start: 20200629
  2. ACETILSALICILICO ACIDO (176A) [Concomitant]
     Active Substance: ASPIRIN
     Indication: ACUTE MYOCARDIAL INFARCTION
     Route: 048
     Dates: start: 20200629
  3. OLMESARTAN + AMLODIPINO [Suspect]
     Active Substance: AMLODIPINE\OLMESARTAN
     Indication: HYPERTENSION
     Route: 048
     Dates: start: 202008, end: 202101
  4. ATORVASTATINA + EZETIMIBA [Concomitant]
     Active Substance: ATORVASTATIN\EZETIMIBE
     Indication: DYSLIPIDAEMIA
     Route: 048
     Dates: start: 202008, end: 202101

REACTIONS (1)
  - Cutaneous vasculitis [Recovering/Resolving]

NARRATIVE: CASE EVENT DATE: 20201225
